FAERS Safety Report 24216296 (Version 2)
Quarter: 2024Q3

REPORT INFORMATION
  Report Type: Spontaneous
  Country: JP (occurrence: JP)
  Receive Date: 20240816
  Receipt Date: 20240905
  Transmission Date: 20241016
  Serious: Yes (Hospitalization, Disabling, Other)
  Sender: ABBVIE
  Company Number: JP-TAKEDA-2024TJP011903

PATIENT
  Age: 74 Year
  Sex: Male
  Weight: 57.7 kg

DRUGS (2)
  1. LEUPLIN [Suspect]
     Active Substance: LEUPROLIDE ACETATE
     Indication: Prostate cancer
     Dosage: 22.5 MILLIGRAM, Q6MONTHS
     Route: 058
     Dates: start: 20240614, end: 20240614
  2. BICALUTAMIDE [Concomitant]
     Active Substance: BICALUTAMIDE
     Indication: Prostate cancer
     Dosage: 80 MILLIGRAM, QD
     Route: 048
     Dates: start: 20240510, end: 20240821

REACTIONS (2)
  - Cardiac failure [Unknown]
  - Cardiac failure [Recovered/Resolved with Sequelae]

NARRATIVE: CASE EVENT DATE: 20240726
